FAERS Safety Report 6253768-6 (Version None)
Quarter: 2009Q2

REPORT INFORMATION
  Report Type: 
  Country: None (occurrence: None)
  Receive Date: 20090630
  Receipt Date: 20090615
  Transmission Date: 20091009
  Serious: Yes (Other)
  Sender: FDA-Public Use
  Company Number: 2009BM000079

PATIENT
  Age: 22 Year
  Sex: Male
  Weight: 88.4514 kg

DRUGS (1)
  1. KUVAN [Suspect]
     Indication: PHENYLKETONURIA
     Dosage: 20 MG/KG; QD; PO
     Route: 048
     Dates: start: 20071003

REACTIONS (5)
  - ANAL ABSCESS [None]
  - ANAL FISTULA [None]
  - BACTERIAL INFECTION [None]
  - CELLULITIS [None]
  - HAEMORRHAGE [None]
